FAERS Safety Report 5429331-3 (Version None)
Quarter: 2007Q3

REPORT INFORMATION
  Report Type: 
  Country: None (occurrence: None)
  Receive Date: 20070827
  Receipt Date: 20070827
  Transmission Date: 20080115
  Serious: Yes (Life-Threatening, Other)
  Sender: FDA-Public Use
  Company Number: None

PATIENT
  Age: 72 Year
  Sex: Male
  Weight: 142.4295 kg

DRUGS (1)
  1. ACTOS [Suspect]
     Indication: TYPE 2 DIABETES MELLITUS
     Dosage: 15MG TAB ONE TAB EVERY DAY PO
     Route: 048
     Dates: start: 20070312, end: 20070622

REACTIONS (6)
  - CARDIAC FAILURE CONGESTIVE [None]
  - DYSPNOEA [None]
  - NON-CARDIAC CHEST PAIN [None]
  - PLEURAL EFFUSION [None]
  - SLEEP DISORDER [None]
  - WEIGHT INCREASED [None]
